FAERS Safety Report 6115635-8 (Version None)
Quarter: 2009Q1

REPORT INFORMATION
  Report Type: 
  Country: None (occurrence: None)
  Receive Date: 20090313
  Receipt Date: 20090304
  Transmission Date: 20090719
  Serious: Yes (Hospitalization, Other)
  Sender: FDA-Public Use
  Company Number: US-JNJFOC-20090203170

PATIENT
  Sex: Male

DRUGS (7)
  1. REMICADE [Suspect]
     Indication: CROHN'S DISEASE
     Dosage: 5 INFUSIONS
     Route: 042
  2. CIMZIA [Concomitant]
  3. CIMZIA [Concomitant]
  4. CIMZIA [Concomitant]
  5. CIMZIA [Concomitant]
  6. ENTOCORT EC [Concomitant]
  7. PREDNISONE [Concomitant]

REACTIONS (4)
  - MUSCLE SPASMS [None]
  - NEPHROLITHIASIS [None]
  - PROSTATE CANCER STAGE II [None]
  - SERUM SICKNESS [None]
